FAERS Safety Report 5204827-8 (Version None)
Quarter: 2007Q1

REPORT INFORMATION
  Report Type: 
  Country: None (occurrence: None)
  Receive Date: 20070110
  Receipt Date: 20061012
  Transmission Date: 20070707
  Serious: No
  Sender: FDA-Public Use
  Company Number: US-BRISTOL-MYERS SQUIBB COMPANY-13457064

PATIENT
  Age: 21 Year
  Sex: Female
  Weight: 63 kg

DRUGS (3)
  1. ABILIFY [Suspect]
     Indication: BIPOLAR DISORDER
     Route: 048
  2. PRENATAL VITAMINS [Concomitant]
  3. LAXATIVES [Concomitant]

REACTIONS (1)
  - PREGNANCY [None]
